FAERS Safety Report 9457402 (Version 3)
Quarter: 2013Q3

REPORT INFORMATION
  Report Type: Spontaneous
  Country: GB (occurrence: GB)
  Receive Date: 20130814
  Receipt Date: 20130916
  Transmission Date: 20140515
  Serious: Yes (Hospitalization, Other)
  Sender: FDA-Public Use
  Company Number: GB-RANBAXY-2013R1-71949

PATIENT
  Age: 37 Year
  Sex: Male

DRUGS (5)
  1. LORATADINE [Suspect]
     Indication: SEASONAL ALLERGY
     Route: 048
  2. EPILIM CHRONO [Interacting]
     Indication: EPILEPSY
     Dosage: 500 MG, QD
     Route: 048
     Dates: start: 201307
  3. EPILIM CHRONO [Interacting]
     Indication: EPILEPSY
     Dosage: 500 MG, QD
     Route: 048
  4. CETIRIZINE [Concomitant]
     Indication: SEASONAL ALLERGY
     Dosage: 10 MG, QD
     Route: 065
  5. FLUOXETINE [Concomitant]
     Indication: PRODUCT USED FOR UNKNOWN INDICATION
     Dosage: 20 MG, QD
     Route: 065

REACTIONS (3)
  - Drug dispensing error [Unknown]
  - Drug interaction [Unknown]
  - Convulsion [Recovered/Resolved]
